FAERS Safety Report 26184326 (Version 1)
Quarter: 2025Q4

REPORT INFORMATION
  Report Type: Spontaneous
  Country: US (occurrence: US)
  Receive Date: 20251222
  Receipt Date: 20251222
  Transmission Date: 20260117
  Serious: No
  Sender: TOLMAR
  Company Number: US-Tolmar-TLM-2025-09474

PATIENT
  Sex: Male

DRUGS (2)
  1. ELIGARD [Suspect]
     Active Substance: LEUPROLIDE ACETATE
     Indication: Product used for unknown indication
     Dosage: BOX: 15513CUS EXP: 03-2027?SN#: 3902497252480?GTIN: 00362935227106?SYRINGE A: DISCARDED?SYRINGE B: D
  2. DEVICE [Suspect]
     Active Substance: DEVICE
     Indication: Product used for unknown indication
     Dosage: BOX: 15513CUS EXP: 03-2027?SN#: 3902497252480?GTIN: 00362935227106?SYRINGE A: DISCARDED?SYRINGE B: D

REACTIONS (2)
  - Injury associated with device [Unknown]
  - Accidental exposure to product [Unknown]
